FAERS Safety Report 24767531 (Version 1)
Quarter: 2024Q4

REPORT INFORMATION
  Report Type: Spontaneous
  Country: US (occurrence: US)
  Receive Date: 20241223
  Receipt Date: 20241223
  Transmission Date: 20250115
  Serious: Yes (Hospitalization)
  Sender: INCYTE
  Company Number: US-EVENT-000947

PATIENT

DRUGS (1)
  1. OPZELURA [Suspect]
     Active Substance: RUXOLITINIB PHOSPHATE
     Indication: Product used for unknown indication
     Dosage: APPLY TO AFFECTED AREA(S) TWICE DAILY AS DIRECTED
     Route: 065
     Dates: start: 202407

REACTIONS (1)
  - Hypertension [Unknown]
